FAERS Safety Report 11683356 (Version 1)
Quarter: 2015Q4

REPORT INFORMATION
  Report Type: Spontaneous
  Country: CA (occurrence: CA)
  Receive Date: 20151029
  Receipt Date: 20151029
  Transmission Date: 20160304
  Serious: Yes (Other)
  Sender: FDA-Public Use
  Company Number: CA-BAYER-2015-197495

PATIENT
  Age: 50 Year
  Sex: Female

DRUGS (10)
  1. MIRENA [Suspect]
     Active Substance: LEVONORGESTREL
     Dosage: 20 MCG/24HR, CONT
     Route: 015
     Dates: start: 20141212, end: 20150505
  2. NAPROXEN. [Concomitant]
     Active Substance: NAPROXEN
     Dosage: 220 MG, BID
  3. L-TRYPTOPHAN [Concomitant]
     Active Substance: TRYPTOPHAN
     Dosage: 1 G, PER NIGHT
  4. SENOKOT [Concomitant]
     Active Substance: SENNOSIDES
  5. GAS-X [Concomitant]
     Active Substance: DIMETHICONE
  6. MIRENA [Suspect]
     Active Substance: LEVONORGESTREL
     Dosage: 20 MCG/24HR, CONT
     Route: 015
     Dates: end: 20110830
  7. BACLOFEN. [Concomitant]
     Active Substance: BACLOFEN
     Dosage: 10 MG FOUR TIMES A PER DAY
  8. DEXADRIN [Concomitant]
     Dosage: 10 MG, PER DAY
  9. CLONAZEPAM. [Concomitant]
     Active Substance: CLONAZEPAM
     Dosage: 50 MG, PER NIGHT
  10. NEXIUM [Concomitant]
     Active Substance: ESOMEPRAZOLE MAGNESIUM
     Dosage: 40 MG, PER DAY

REACTIONS (23)
  - Visual impairment [None]
  - Headache [None]
  - Vision blurred [None]
  - Myalgia [None]
  - Device use error [None]
  - Breast enlargement [None]
  - Device expulsion [None]
  - Vomiting [None]
  - Pain [None]
  - White matter lesion [None]
  - Ultrasound uterus abnormal [None]
  - Dizziness [None]
  - Diarrhoea [None]
  - Pelvic pain [None]
  - Eye pain [None]
  - Unintentional medical device removal [None]
  - Visual acuity reduced [None]
  - Migraine [None]
  - Genital haemorrhage [Not Recovered/Not Resolved]
  - Musculoskeletal discomfort [None]
  - Pyrexia [None]
  - Uterine leiomyoma [None]
  - Procedural pain [None]

NARRATIVE: CASE EVENT DATE: 2012
